FAERS Safety Report 10161496 (Version 3)
Quarter: 2014Q2

REPORT INFORMATION
  Report Type: Spontaneous
  Country: FR (occurrence: FR)
  Receive Date: 20140509
  Receipt Date: 20140526
  Transmission Date: 20141212
  Serious: Yes (Other)
  Sender: FDA-Public Use
  Company Number: FR-BIOGENIDEC-2014BI040747

PATIENT
  Age: 27 Year
  Sex: Female

DRUGS (2)
  1. TYSABRI [Suspect]
     Indication: RELAPSING-REMITTING MULTIPLE SCLEROSIS
     Route: 042
     Dates: start: 201001, end: 2012
  2. TYSABRI [Suspect]
     Indication: RELAPSING-REMITTING MULTIPLE SCLEROSIS
     Route: 042
     Dates: start: 20140131

REACTIONS (5)
  - Device related sepsis [Unknown]
  - Septic embolus [Unknown]
  - Multiple sclerosis relapse [Recovered/Resolved]
  - Thrombocytopenia [Not Recovered/Not Resolved]
  - Diarrhoea [Not Recovered/Not Resolved]
